FAERS Safety Report 25473500 (Version 1)
Quarter: 2025Q2

REPORT INFORMATION
  Report Type: Spontaneous
  Country: JP (occurrence: JP)
  Receive Date: 20250624
  Receipt Date: 20250624
  Transmission Date: 20250717
  Serious: No
  Sender: PFIZER
  Company Number: JP-PFIZER INC-PV202500068943

PATIENT

DRUGS (1)
  1. ENBREL [Suspect]
     Active Substance: ETANERCEPT

REACTIONS (3)
  - Needle issue [Unknown]
  - Device occlusion [Unknown]
  - Device leakage [Unknown]

NARRATIVE: CASE EVENT DATE: 20250609
